FAERS Safety Report 15858723 (Version 1)
Quarter: 2019Q1

REPORT INFORMATION
  Report Type: Spontaneous
  Country: US (occurrence: US)
  Receive Date: 20190123
  Receipt Date: 20190123
  Transmission Date: 20190417
  Serious: Yes (Disabling)
  Sender: FDA-Public Use
  Company Number: None

PATIENT
  Age: 46 Year
  Sex: Female
  Weight: 74.25 kg

DRUGS (4)
  1. DAILY MULTIVITAMIN [Concomitant]
     Active Substance: VITAMINS
  2. CIPROFLOXACIN 500 MG TABLETS [Suspect]
     Active Substance: CIPROFLOXACIN
     Indication: BACTERIAL INFECTION
     Dosage: ?          OTHER STRENGTH:TABLET;QUANTITY:1 TABLET(S);?
     Route: 048
     Dates: start: 20190119, end: 20190121
  3. VITAMIN D3 [Concomitant]
     Active Substance: CHOLECALCIFEROL
  4. B12 INJECTION ONCE MONTHLY [Concomitant]

REACTIONS (2)
  - Arthralgia [None]
  - Myalgia [None]

NARRATIVE: CASE EVENT DATE: 20190120
